FAERS Safety Report 25471750 (Version 1)
Quarter: 2025Q2

REPORT INFORMATION
  Report Type: Spontaneous
  Country: CN (occurrence: CN)
  Receive Date: 20250624
  Receipt Date: 20250624
  Transmission Date: 20250717
  Serious: Yes (Hospitalization)
  Sender: NOVO NORDISK
  Company Number: CN-NOVOPROD-1463123

PATIENT
  Age: 28 Year
  Sex: Female
  Weight: 40 kg

DRUGS (2)
  1. OZEMPIC [Suspect]
     Active Substance: SEMAGLUTIDE
  2. OZEMPIC [Suspect]
     Active Substance: SEMAGLUTIDE
     Indication: Type 2 diabetes mellitus
     Dates: start: 202410

REACTIONS (4)
  - Fall [Unknown]
  - Limb injury [Unknown]
  - Abdominal injury [Unknown]
  - Inappropriate schedule of product administration [Unknown]
